FAERS Safety Report 21700379 (Version 2)
Quarter: 2024Q2

REPORT INFORMATION
  Report Type: Spontaneous
  Country: US (occurrence: US)
  Receive Date: 20221208
  Receipt Date: 20240523
  Transmission Date: 20240715
  Serious: No
  Sender: FDA-Public Use
  Company Number: US-SA-SAC20221207000444

PATIENT
  Sex: Female
  Weight: 61.2 kg

DRUGS (22)
  1. DUPIXENT [Suspect]
     Active Substance: DUPILUMAB
     Indication: Dermatitis atopic
     Dosage: 300 MG, QOW
     Route: 058
     Dates: start: 202106
  2. DUPIXENT [Suspect]
     Active Substance: DUPILUMAB
     Indication: Dermatitis allergic
  3. DUPIXENT [Suspect]
     Active Substance: DUPILUMAB
     Indication: Dermatitis contact
  4. CLOBETASOL [Concomitant]
     Active Substance: CLOBETASOL
  5. ALBUTEROL SULFATE [Concomitant]
     Active Substance: ALBUTEROL SULFATE
  6. TRIAMCINOLONE ACETONIDE [Concomitant]
     Active Substance: TRIAMCINOLONE ACETONIDE
     Dosage: UNK
  7. LEVOTHYROXINE [Concomitant]
     Active Substance: LEVOTHYROXINE\LEVOTHYROXINE SODIUM
  8. PROBIOTIC ACIDOPHILUS [LACTOBACILLUS ACIDOPHILUS] [Concomitant]
  9. VITAMINS NOS [Concomitant]
     Active Substance: VITAMINS
  10. XIIDRA [Concomitant]
     Active Substance: LIFITEGRAST
     Dosage: UNK
  11. LEXAPRO [Concomitant]
     Active Substance: ESCITALOPRAM OXALATE
     Dosage: UNK
  12. VITAMIN D3 [Concomitant]
     Active Substance: CHOLECALCIFEROL
     Dosage: UNK
  13. CALCIUM [Concomitant]
     Active Substance: CALCIUM
     Dosage: UNK
  14. FISH OIL [Concomitant]
     Active Substance: FISH OIL
     Dosage: UNK
  15. LEVOCETIRIZINE DIHYDROCHLORIDE [Concomitant]
     Active Substance: LEVOCETIRIZINE DIHYDROCHLORIDE
     Dosage: UNK
  16. LORATADINE [Concomitant]
     Active Substance: LORATADINE
     Dosage: UNK
  17. TIROSINT [Concomitant]
     Active Substance: LEVOTHYROXINE SODIUM
     Dosage: UNK
  18. ALBUTEROL SULFATE [Concomitant]
     Active Substance: ALBUTEROL SULFATE
     Dosage: UNK
  19. CLOBETASOL PROPIONATE [Concomitant]
     Active Substance: CLOBETASOL PROPIONATE
     Dosage: UNK
  20. NALTREXONE HYDROCHLORIDE [Concomitant]
     Active Substance: NALTREXONE HYDROCHLORIDE
     Dosage: UNK
  21. VITAMINS [Concomitant]
     Active Substance: VITAMINS
     Dosage: UNK
  22. MAGNESIUM [Concomitant]
     Active Substance: MAGNESIUM
     Dosage: UNK

REACTIONS (4)
  - Ocular hyperaemia [Unknown]
  - Eye pruritus [Unknown]
  - Eye irritation [Unknown]
  - Product use in unapproved indication [Unknown]

NARRATIVE: CASE EVENT DATE: 20210601
